FAERS Safety Report 10101770 (Version 1)
Quarter: 2014Q2

REPORT INFORMATION
  Report Type: Spontaneous
  Country: US (occurrence: None)
  Receive Date: 20140422
  Receipt Date: 20140422
  Transmission Date: 20141212
  Serious: Yes (Other)
  Sender: FDA-Public Use
  Company Number: IMP_07568_2014

PATIENT
  Age: 32 Year
  Sex: Female

DRUGS (1)
  1. CABERGOLINE [Suspect]
     Indication: PROLACTINOMA

REACTIONS (2)
  - SUNCT syndrome [None]
  - Maternal exposure during pregnancy [None]
